FAERS Safety Report 16420864 (Version 1)
Quarter: 2019Q2

REPORT INFORMATION
  Report Type: Report from Study
  Country: None (occurrence: US)
  Receive Date: 20190612
  Receipt Date: 20190612
  Transmission Date: 20190711
  Serious: Yes (Hospitalization, Other)
  Sender: FDA-Public Use
  Company Number: US-ABBVIE-17K-163-2081787-00

PATIENT
  Age: 49 Year
  Sex: Female

DRUGS (13)
  1. NEXIUM [Concomitant]
     Active Substance: ESOMEPRAZOLE MAGNESIUM
     Indication: PRODUCT USED FOR UNKNOWN INDICATION
  2. AMITRIPTYLINE [Concomitant]
     Active Substance: AMITRIPTYLINE
     Indication: MIGRAINE
  3. DICYCLOVERINE [Concomitant]
     Active Substance: DICYCLOMINE HYDROCHLORIDE
     Indication: ABDOMINAL PAIN UPPER
  4. LISINOPRIL. [Concomitant]
     Active Substance: LISINOPRIL
     Indication: HYPERTENSION
  5. PRAMIPEXOLE. [Concomitant]
     Active Substance: PRAMIPEXOLE
     Indication: RESTLESS LEGS SYNDROME
  6. HUMIRA [Suspect]
     Active Substance: ADALIMUMAB
     Indication: CROHN^S DISEASE
     Route: 058
     Dates: start: 201703
  7. LEVOTHYROXINE. [Concomitant]
     Active Substance: LEVOTHYROXINE
     Indication: HYPOTHYROIDISM
  8. HUMIRA [Suspect]
     Active Substance: ADALIMUMAB
     Route: 058
     Dates: start: 201905
  9. RANITIDINE. [Concomitant]
     Active Substance: RANITIDINE
     Indication: GASTROOESOPHAGEAL REFLUX DISEASE
  10. HYDROCODONE [Concomitant]
     Active Substance: HYDROCODONE
     Indication: ABDOMINAL PAIN UPPER
  11. ATORVASTATIN [Concomitant]
     Active Substance: ATORVASTATIN
     Indication: BLOOD CHOLESTEROL INCREASED
  12. ZYRTEC [Concomitant]
     Active Substance: CETIRIZINE HYDROCHLORIDE
     Indication: HYPERSENSITIVITY
  13. FOLIC ACID. [Concomitant]
     Active Substance: FOLIC ACID
     Indication: BLOOD FOLATE DECREASED

REACTIONS (23)
  - Stomatitis [Recovering/Resolving]
  - Fall [Recovered/Resolved]
  - Intracardiac thrombus [Recovered/Resolved]
  - Oral disorder [Recovering/Resolving]
  - Vertigo [Recovered/Resolved]
  - Hypoaesthesia oral [Recovering/Resolving]
  - Hypoacusis [Recovered/Resolved]
  - Musculoskeletal disorder [Recovered/Resolved]
  - Blood cholesterol increased [Unknown]
  - Crohn^s disease [Unknown]
  - Swollen tongue [Recovering/Resolving]
  - Feeling abnormal [Recovered/Resolved]
  - Lip swelling [Recovered/Resolved]
  - General physical health deterioration [Unknown]
  - Diarrhoea [Recovering/Resolving]
  - Vomiting [Recovered/Resolved]
  - Vomiting [Unknown]
  - Transient ischaemic attack [Not Recovered/Not Resolved]
  - Amnesia [Not Recovered/Not Resolved]
  - Wrist fracture [Recovering/Resolving]
  - Unevaluable event [Not Recovered/Not Resolved]
  - Transient ischaemic attack [Recovered/Resolved]
  - Pain in extremity [Not Recovered/Not Resolved]

NARRATIVE: CASE EVENT DATE: 201706
